FAERS Safety Report 7028608-8 (Version None)
Quarter: 2010Q4

REPORT INFORMATION
  Report Type: 
  Country: None (occurrence: None)
  Receive Date: 20101005
  Receipt Date: 20100928
  Transmission Date: 20110411
  Serious: Yes (Hospitalization)
  Sender: FDA-Public Use
  Company Number: GB-AMGEN-QUU441404

PATIENT
  Age: 44 Year
  Sex: Male

DRUGS (4)
  1. NEULASTA [Suspect]
     Indication: CHEMOTHERAPY
     Route: 065
  2. CISPLATIN [Concomitant]
  3. DOCETAXEL [Concomitant]
  4. FLUOROURACIL [Concomitant]

REACTIONS (1)
  - SEPSIS [None]
